FAERS Safety Report 6788580-2 (Version None)
Quarter: 2010Q2

REPORT INFORMATION
  Report Type: 
  Country: None (occurrence: None)
  Receive Date: 20100623
  Receipt Date: 20080516
  Transmission Date: 20101027
  Serious: No
  Sender: FDA-Public Use
  Company Number: US-PFIZER INC-2008027547

PATIENT
  Sex: Female
  Weight: 59.09 kg

DRUGS (2)
  1. MEDROXYPROGESTERONE ACETATE [Suspect]
  2. ADVIL LIQUI-GELS [Concomitant]

REACTIONS (3)
  - INCORRECT DOSE ADMINISTERED [None]
  - INJECTION SITE PAIN [None]
  - PAIN [None]
